FAERS Safety Report 6617628-0 (Version None)
Quarter: 2010Q1

REPORT INFORMATION
  Report Type: 
  Country: None (occurrence: None)
  Receive Date: 20100308
  Receipt Date: 20100222
  Transmission Date: 20100710
  Serious: Yes (Other)
  Sender: FDA-Public Use
  Company Number: 2008BI008577

PATIENT
  Age: 58 Year
  Sex: Male

DRUGS (13)
  1. TYSABRI [Suspect]
     Indication: MULTIPLE SCLEROSIS
     Route: 042
     Dates: start: 20070425, end: 20080222
  2. CLARITIN [Concomitant]
     Dates: start: 20080102
  3. TYLENOL-500 [Concomitant]
     Indication: PROPHYLAXIS
     Route: 048
     Dates: start: 20080102
  4. ARICEPT [Concomitant]
     Route: 048
     Dates: start: 20071107
  5. IBUPROFEN [Concomitant]
     Dates: start: 20071107
  6. AMBIEN [Concomitant]
     Indication: INSOMNIA
     Dates: start: 20071107
  7. BUPROPION HYDROCHLORIDE [Concomitant]
     Route: 048
     Dates: start: 20071107
  8. PROVIGIL [Concomitant]
     Indication: FATIGUE
     Route: 048
     Dates: start: 20071107
  9. NAMENDA [Concomitant]
     Route: 048
     Dates: start: 20071107
  10. BACLOFEN [Concomitant]
     Indication: MUSCLE SPASTICITY
     Route: 048
     Dates: start: 20071107
  11. VIAGRA [Concomitant]
     Indication: ERECTILE DYSFUNCTION
     Route: 048
     Dates: start: 20071107
  12. ASPIRIN [Concomitant]
     Indication: HYPERCHOLESTEROLAEMIA
     Route: 048
     Dates: start: 20070912
  13. ZOCOR [Concomitant]
     Route: 048
     Dates: start: 20070912

REACTIONS (5)
  - ALANINE AMINOTRANSFERASE INCREASED [None]
  - ASPARTATE AMINOTRANSFERASE INCREASED [None]
  - BLOOD BILIRUBIN INCREASED [None]
  - GLOBULINS INCREASED [None]
  - HEADACHE [None]
